FAERS Safety Report 6459024-5 (Version None)
Quarter: 2009Q4

REPORT INFORMATION
  Report Type: 
  Country: None (occurrence: None)
  Receive Date: 20091127
  Receipt Date: 20091116
  Transmission Date: 20100525
  Serious: Yes (Other)
  Sender: FDA-Public Use
  Company Number: FR-ELI_LILLY_AND_COMPANY-FR200911004118

PATIENT
  Age: 70 Year
  Sex: Female

DRUGS (2)
  1. BYETTA [Suspect]
     Dosage: 10 MG, UNK
     Route: 058
  2. ACTOS [Concomitant]
     Dosage: UNK, UNKNOWN

REACTIONS (1)
  - HYPERGLYCAEMIA [None]
